FAERS Safety Report 5317440-9 (Version None)
Quarter: 2007Q2

REPORT INFORMATION
  Report Type: 
  Country: None (occurrence: None)
  Receive Date: 20070503
  Receipt Date: 20070503
  Transmission Date: 20071010
  Serious: Yes (Other)
  Sender: FDA-Public Use
  Company Number: None

PATIENT
  Age: 26 Year
  Sex: Male
  Weight: 104.3273 kg

DRUGS (3)
  1. DOXEPIN HCL [Suspect]
     Indication: DEPRESSION
     Dates: start: 19960101
  2. NEURONTIN [Suspect]
     Indication: PAIN
     Dates: start: 20030101
  3. PAXIL [Suspect]
     Dates: start: 19960101

REACTIONS (5)
  - ALANINE AMINOTRANSFERASE INCREASED [None]
  - ASPARTATE AMINOTRANSFERASE INCREASED [None]
  - BLOOD BILIRUBIN INCREASED [None]
  - CHOLELITHIASIS [None]
  - HEPATIC STEATOSIS [None]
